FAERS Safety Report 9490012 (Version 1)
Quarter: 2013Q3

REPORT INFORMATION
  Report Type: Spontaneous
  Country: DE (occurrence: DE)
  Receive Date: 20130829
  Receipt Date: 20130829
  Transmission Date: 20140515
  Serious: Yes (Death)
  Sender: FDA-Public Use
  Company Number: DE-BAXTER-2013BAX033592

PATIENT
  Sex: 0

DRUGS (1)
  1. CEPROTIN 500 I.E. [Suspect]
     Indication: VENOOCCLUSIVE LIVER DISEASE
     Dosage: 700 IU/KG TO 2000 IU/KG
     Route: 065

REACTIONS (1)
  - Death [Fatal]
